FAERS Safety Report 4632364-8 (Version None)
Quarter: 2005Q2

REPORT INFORMATION
  Report Type: 
  Country: None (occurrence: None)
  Receive Date: 20050411
  Receipt Date: 20050311
  Transmission Date: 20051028
  Serious: Yes (Life-Threatening, Hospitalization, Other)
  Sender: FDA-Public Use
  Company Number: US-GLAXOSMITHKLINE-A0549649A

PATIENT
  Age: 57 Year
  Sex: Female
  Weight: 91.8 kg

DRUGS (11)
  1. ADVAIR DISKUS 100/50 [Suspect]
     Indication: DRUG USE FOR UNKNOWN INDICATION
     Dosage: 1PUFF TWICE PER DAY
     Route: 055
  2. HYDROCHLOROTHIAZIDE [Concomitant]
     Dosage: 12.5MG PER DAY
     Route: 048
  3. PRED FORTE [Concomitant]
     Route: 065
  4. PREMARIN [Concomitant]
     Route: 065
  5. MAXALT [Concomitant]
     Dosage: 10MG TWELVE TIMES PER DAY
     Route: 048
  6. REGLAN [Concomitant]
     Dosage: 10MG AS REQUIRED
     Route: 048
  7. ALBUTEROL [Concomitant]
     Dosage: 90MCG UNKNOWN
     Route: 055
  8. ALLEGRA [Concomitant]
     Dosage: 60MG TWICE PER DAY
     Route: 048
  9. IMITREX [Concomitant]
  10. NASACORT [Concomitant]
     Route: 045
  11. SOMA [Concomitant]
     Dosage: 350MG AT NIGHT
     Route: 048

REACTIONS (10)
  - ANAPHYLACTIC REACTION [None]
  - ANGIONEUROTIC OEDEMA [None]
  - BRONCHOSPASM [None]
  - FACE OEDEMA [None]
  - LARYNGEAL OEDEMA [None]
  - RESPIRATORY DISORDER [None]
  - STRIDOR [None]
  - SWELLING FACE [None]
  - THROAT TIGHTNESS [None]
  - TREMOR [None]
